FAERS Safety Report 9430226 (Version 3)
Quarter: 2013Q3

REPORT INFORMATION
  Report Type: Spontaneous
  Country: US (occurrence: US)
  Receive Date: 20130730
  Receipt Date: 20130930
  Transmission Date: 20140515
  Serious: Yes (Death, Hospitalization)
  Sender: FDA-Public Use
  Company Number: US-GLAXOSMITHKLINE-A0903496A

PATIENT
  Age: 68 Year
  Sex: Female
  Weight: 63.6 kg

DRUGS (8)
  1. FLOLAN [Suspect]
     Indication: PULMONARY ARTERIAL HYPERTENSION
     Dosage: 17NGKM CONTINUOUS
     Route: 042
     Dates: start: 20100622
  2. LETAIRIS [Concomitant]
     Dosage: 5MG PER DAY
  3. LOVASTATIN [Concomitant]
     Dosage: 10MG PER DAY
  4. WARFARIN [Concomitant]
     Dosage: 5MG PER DAY
  5. DILTIAZEM [Concomitant]
     Dosage: 120MG PER DAY
  6. CALCIUM [Concomitant]
     Dosage: 500MG PER DAY
  7. FISH OIL [Concomitant]
  8. VITAMIN E [Concomitant]

REACTIONS (7)
  - Flushing [Recovering/Resolving]
  - Pain in jaw [Recovering/Resolving]
  - Local swelling [Unknown]
  - Fall [Unknown]
  - Head injury [Unknown]
  - Suture insertion [Unknown]
  - Death [Fatal]
